FAERS Safety Report 8392854 (Version 2)
Quarter: 2013Q1

REPORT INFORMATION
  Report Type: Spontaneous
  Country: US (occurrence: US)
  Receive Date: 20120207
  Receipt Date: 20130211
  Transmission Date: 20140127
  Serious: No
  Sender: FDA-Public Use
  Company Number: US-BIOGENIDEC-2012BI003764

PATIENT
  Age: 57 Year
  Sex: Female

DRUGS (1)
  1. TYSABRI [Suspect]
     Indication: MULTIPLE SCLEROSIS
     Route: 042
     Dates: start: 20110818

REACTIONS (8)
  - Fungal infection [Unknown]
  - Skin infection [Unknown]
  - Cognitive disorder [Unknown]
  - Memory impairment [Unknown]
  - Multiple sclerosis [Unknown]
  - Herpes zoster [Recovered/Resolved]
  - Candida infection [Recovered/Resolved]
  - Ill-defined disorder [Unknown]
